FAERS Safety Report 21803604 (Version 1)
Quarter: 2023Q1

REPORT INFORMATION
  Report Type: Report from Study
  Country: FR (occurrence: FR)
  Receive Date: 20230102
  Receipt Date: 20230102
  Transmission Date: 20230418
  Serious: Yes (Hospitalization, Other)
  Sender: FDA-Public Use
  Company Number: FR-ABBVIE-4254661

PATIENT
  Age: 66 Year
  Sex: Male

DRUGS (2)
  1. CARBIDOPA\LEVODOPA [Suspect]
     Active Substance: CARBIDOPA\LEVODOPA
     Indication: Parkinson^s disease
     Dosage: THE START DATE OF EVENT FECALOMA, OTITIS AND PHARYNGITIS WAS CONSIDERED AS 2022
     Route: 050
     Dates: start: 20220913
  2. CARBIDOPA\LEVODOPA [Suspect]
     Active Substance: CARBIDOPA\LEVODOPA

REACTIONS (5)
  - Hyperthermia [Not Recovered/Not Resolved]
  - Asthenia [Unknown]
  - Ear infection [Unknown]
  - Pharyngitis [Unknown]
  - Faecaloma [Unknown]

NARRATIVE: CASE EVENT DATE: 20221228
